FAERS Safety Report 6645698-2 (Version None)
Quarter: 2010Q1

REPORT INFORMATION
  Report Type: 
  Country: None (occurrence: None)
  Receive Date: 20100318
  Receipt Date: 20100318
  Transmission Date: 20100710
  Serious: Yes (Life-Threatening)
  Sender: FDA-Public Use
  Company Number: None

PATIENT
  Age: 39 Year
  Sex: Female
  Weight: 52.1637 kg

DRUGS (1)
  1. CHANTIX [Suspect]
     Indication: SMOKING CESSATION THERAPY
     Dosage: 2 TABLETS TWICE A DAY PO
     Route: 048
     Dates: start: 20090305, end: 20090529

REACTIONS (5)
  - ANXIETY [None]
  - DEPRESSION [None]
  - IRRITABILITY [None]
  - NERVOUSNESS [None]
  - SUICIDAL IDEATION [None]
